FAERS Safety Report 15128538 (Version 1)
Quarter: 2018Q3

REPORT INFORMATION
  Report Type: Spontaneous
  Country: FR (occurrence: FR)
  Receive Date: 20180711
  Receipt Date: 20180711
  Transmission Date: 20181010
  Serious: Yes (Life-Threatening)
  Sender: FDA-Public Use
  Company Number: FR-ABBVIE-18S-056-2406945-00

PATIENT
  Age: 37 Year
  Sex: Female
  Weight: 100 kg

DRUGS (4)
  1. SYNTOCINON [Suspect]
     Active Substance: OXYTOCIN
     Indication: LABOUR INDUCTION
     Route: 042
     Dates: start: 20180618, end: 20180618
  2. SUFENTANIL [Suspect]
     Active Substance: SUFENTANIL
     Indication: EPIDURAL ANAESTHESIA
     Route: 042
     Dates: start: 20180618, end: 20180618
  3. LIDOCAINE 2 % ADRENALINE AGUETTANT [Suspect]
     Active Substance: EPINEPHRINE\LIDOCAINE
     Indication: EPIDURAL ANAESTHESIA
     Route: 042
     Dates: start: 20180618, end: 20180618
  4. LEVOBUPIVACAINE [Suspect]
     Active Substance: LEVOBUPIVACAINE
     Indication: EPIDURAL ANAESTHESIA
     Route: 042
     Dates: start: 20180618, end: 20180618

REACTIONS (3)
  - Maternal exposure during delivery [None]
  - Anaemia [Not Recovered/Not Resolved]
  - Third stage postpartum haemorrhage [Recovered/Resolved with Sequelae]

NARRATIVE: CASE EVENT DATE: 20180618
